FAERS Safety Report 24068155 (Version 3)
Quarter: 2024Q3

REPORT INFORMATION
  Report Type: Report from Study
  Country: US (occurrence: US)
  Receive Date: 20240710
  Receipt Date: 20240830
  Transmission Date: 20241017
  Serious: Yes (Hospitalization)
  Sender: DECIPHERA PHARMACEUTICALS
  Company Number: US-DECIPHERA PHARMACEUTICALS LLC-2024US000582

PATIENT
  Age: 58 Year
  Sex: Female

DRUGS (5)
  1. QINLOCK [Suspect]
     Active Substance: RIPRETINIB
     Indication: Gastrointestinal stromal tumour
     Dosage: 150 MILLIGRAM, QD
     Route: 048
     Dates: start: 20240403
  2. QINLOCK [Suspect]
     Active Substance: RIPRETINIB
     Dosage: 150 MILLIGRAM, QD (MISSED ABOUBT 3 DOSES)
     Route: 048
     Dates: start: 202405, end: 2024
  3. QINLOCK [Suspect]
     Active Substance: RIPRETINIB
     Dosage: 150 MILLIGRAM, QD
     Route: 048
     Dates: start: 2024
  4. QINLOCK [Suspect]
     Active Substance: RIPRETINIB
     Dosage: 150 MILLIGRAM, QD (WAS PUT ON HOLD)
     Route: 048
     Dates: start: 202407, end: 2024
  5. QINLOCK [Suspect]
     Active Substance: RIPRETINIB
     Dosage: 150 MILLIGRAM, QD
     Route: 048
     Dates: start: 2024, end: 2024

REACTIONS (11)
  - Dizziness [Unknown]
  - Hepatic enzyme increased [Unknown]
  - Loss of personal independence in daily activities [Unknown]
  - Illness [Unknown]
  - Hypersomnia [Unknown]
  - Taste disorder [Unknown]
  - Visual impairment [Unknown]
  - Blood pressure increased [Unknown]
  - Fatigue [Unknown]
  - Peripheral swelling [Unknown]
  - Product dose omission issue [Unknown]

NARRATIVE: CASE EVENT DATE: 20240101
